FAERS Safety Report 24710944 (Version 1)
Quarter: 2024Q4

REPORT INFORMATION
  Report Type: Spontaneous
  Country: US (occurrence: None)
  Receive Date: 20241206
  Receipt Date: 20241206
  Transmission Date: 20250115
  Serious: No
  Sender: Public
  Company Number: None

PATIENT
  Age: 15 Year
  Sex: Female
  Weight: 105.23 kg

DRUGS (1)
  1. ADBRY [Suspect]
     Active Substance: TRALOKINUMAB-LDRM
     Indication: Dermatitis atopic
     Dosage: INJECT 300MG (2 SYRNGS) SUBCUTANEOUSLY ON DAY 1, THEN 150MG (1 SYRINGE) VERY OTHER WEE
     Route: 058
     Dates: start: 202411

REACTIONS (1)
  - Nasopharyngitis [None]
